FAERS Safety Report 13110753 (Version 1)
Quarter: 2017Q1

REPORT INFORMATION
  Report Type: Report from Study
  Country: DE (occurrence: IT)
  Receive Date: 20170112
  Receipt Date: 20170112
  Transmission Date: 20170428
  Serious: Yes (Life-Threatening, Hospitalization)
  Sender: FDA-Public Use
  Company Number: DE-BAYER-2017-001714

PATIENT
  Age: 54 Year
  Sex: Female

DRUGS (1)
  1. DINOGEST [Suspect]
     Active Substance: DIENOGEST
     Indication: CHEMICAL CONTRACEPTION
     Dosage: UNK UNK, QID
     Route: 048
     Dates: start: 201409, end: 201610

REACTIONS (3)
  - Pulmonary embolism [None]
  - Back pain [None]
  - Arthralgia [None]

NARRATIVE: CASE EVENT DATE: 20161022
